FAERS Safety Report 7533315-9 (Version None)
Quarter: 2011Q2

REPORT INFORMATION
  Report Type: 
  Country: None (occurrence: None)
  Receive Date: 20110608
  Receipt Date: 20110113
  Transmission Date: 20111010
  Serious: Yes (Hospitalization, Other)
  Sender: FDA-Public Use
  Company Number: US-BAYER-201038008NA

PATIENT
  Age: 47 Year
  Sex: Female
  Weight: 61.224 kg

DRUGS (5)
  1. YASMIN [Suspect]
     Indication: CONTRACEPTION
     Dosage: UNK UNK, UNK
     Route: 048
     Dates: start: 20040623, end: 20071031
  2. MAXALT [Concomitant]
  3. METOPROLOL [Concomitant]
     Dosage: 25 MG, BID
  4. BACLOFEN [Concomitant]
  5. REBIF [Concomitant]
     Dosage: UNK UNK, Q3WK
     Route: 058

REACTIONS (1)
  - PULMONARY EMBOLISM [None]
